FAERS Safety Report 19722757 (Version 2)
Quarter: 2023Q4

REPORT INFORMATION
  Report Type: Spontaneous
  Country: US (occurrence: US)
  Receive Date: 20210819
  Receipt Date: 20231121
  Transmission Date: 20240110
  Serious: No
  Sender: FDA-Public Use
  Company Number: US-SA-SAC20210818000023

PATIENT
  Age: 53 Year
  Sex: Male

DRUGS (2)
  1. DUPIXENT [Suspect]
     Active Substance: DUPILUMAB
     Indication: Dermatitis atopic
     Dosage: 200 MG, OTHER
     Route: 058
     Dates: start: 202106
  2. DUPIXENT [Suspect]
     Active Substance: DUPILUMAB
     Dosage: UNK
     Route: 058
     Dates: start: 20220204

REACTIONS (3)
  - Pruritus [Unknown]
  - Skin exfoliation [Unknown]
  - Product use issue [Unknown]

NARRATIVE: CASE EVENT DATE: 20210601
